FAERS Safety Report 9228539 (Version 1)
Quarter: 2013Q2

REPORT INFORMATION
  Report Type: Spontaneous
  Country: US (occurrence: None)
  Receive Date: 20130411
  Receipt Date: 20130411
  Transmission Date: 20140414
  Serious: Yes (Hospitalization)
  Sender: FDA-Public Use
  Company Number: None

PATIENT
  Age: 91 Year
  Sex: Male
  Weight: 86.3 kg

DRUGS (11)
  1. XARELTO [Suspect]
     Indication: ATRIAL FIBRILLATION
     Dosage: CHRONIC USE 15MG DAILY PO
     Route: 048
  2. ASA [Suspect]
     Indication: PROPHYLAXIS
     Dosage: CHRONIC USE 325 MG, DAILY, PO
     Route: 048
  3. CERDINIR [Concomitant]
  4. VITD [Concomitant]
  5. DONEPEZIL [Concomitant]
  6. PRAVASTATIN [Concomitant]
  7. VIT D3 [Concomitant]
  8. METOPROLOL SUCCINATE [Concomitant]
  9. AMIODARONE [Concomitant]
  10. ISOSORBIDE MONONITRATE [Concomitant]
  11. AMLODIPINE [Concomitant]

REACTIONS (2)
  - Lower gastrointestinal haemorrhage [None]
  - Mass [None]
